FAERS Safety Report 6727634-3 (Version None)
Quarter: 2010Q2

REPORT INFORMATION
  Report Type: 
  Country: None (occurrence: None)
  Receive Date: 20100517
  Receipt Date: 20100428
  Transmission Date: 20101027
  Serious: Yes (Other)
  Sender: FDA-Public Use
  Company Number: PHEH2010US00474

PATIENT
  Sex: Female

DRUGS (3)
  1. AFINITOR [Suspect]
     Indication: NEUROENDOCRINE TUMOUR
     Dosage: 10 MG, QD
     Route: 048
     Dates: start: 20091104
  2. AFINITOR [Suspect]
     Dosage: 10 MG, QOD
     Route: 048
     Dates: start: 20091118
  3. AFINITOR [Suspect]
     Dosage: 10 MG TIMES TWO DAYS, THIRD DAY OFF
     Route: 048

REACTIONS (4)
  - CONCOMITANT DISEASE PROGRESSION [None]
  - NEOPLASM MALIGNANT [None]
  - NEUTROPENIA [None]
  - THROMBOCYTOPENIA [None]
